FAERS Safety Report 9444120 (Version 1)
Quarter: 2013Q3

REPORT INFORMATION
  Report Type: Spontaneous
  Country: US (occurrence: None)
  Receive Date: 20130729
  Receipt Date: 20130729
  Transmission Date: 20140515
  Serious: No
  Sender: FDA-Public Use
  Company Number: US-145461

PATIENT
  Age: 8 Year
  Sex: Female

DRUGS (1)
  1. WINRHO [Suspect]
     Indication: IMMUNE THROMBOCYTOPENIC PURPURA
     Dates: start: 2006, end: 2006

REACTIONS (1)
  - Haemoglobin decreased [None]
